FAERS Safety Report 17849368 (Version 1)
Quarter: 2020Q2

REPORT INFORMATION
  Report Type: Spontaneous
  Country: US (occurrence: US)
  Receive Date: 20200601
  Receipt Date: 20200601
  Transmission Date: 20200714
  Serious: Yes (Other)
  Sender: FDA-Public Use
  Company Number: None

PATIENT
  Age: 70 Year
  Sex: Male
  Weight: 101.7 kg

DRUGS (19)
  1. REMDESIVIR. [Suspect]
     Active Substance: REMDESIVIR
     Indication: COVID-19
     Dates: start: 20200523, end: 20200526
  2. NOREPINEPHRINE. [Concomitant]
     Active Substance: NOREPINEPHRINE
     Dates: start: 20200524
  3. INSULIN REGULAR [Concomitant]
     Active Substance: INSULIN NOS
     Dates: start: 20200524
  4. MEROPENEM. [Concomitant]
     Active Substance: MEROPENEM
     Dates: start: 20200528
  5. INSULIN ASPART [Concomitant]
     Active Substance: INSULIN ASPART
     Dates: start: 20120315, end: 20200521
  6. REMDESIVIR. [Suspect]
     Active Substance: REMDESIVIR
     Indication: COVID-19
     Route: 042
     Dates: start: 20200522, end: 20200522
  7. LISINOPRIL-HYDROCHLOROTHIAZIDE [Concomitant]
     Active Substance: HYDROCHLOROTHIAZIDE\LISINOPRIL
     Dates: start: 20191105, end: 20200521
  8. PRISMASSOL [Concomitant]
     Dates: start: 20200529
  9. INSULIN GLARGINE [Concomitant]
     Active Substance: INSULIN GLARGINE
     Dates: start: 20100725, end: 20200526
  10. PROPOFOL. [Concomitant]
     Active Substance: PROPOFOL
     Dates: start: 20200524
  11. LINEZOID [Concomitant]
     Dates: start: 20200529
  12. DICLOFENAC [Concomitant]
     Active Substance: DICLOFENAC
     Dates: start: 20170328, end: 20200521
  13. HYDROPHORPHONE [Concomitant]
     Dates: start: 20200524
  14. LEVOTHYROXINE. [Concomitant]
     Active Substance: LEVOTHYROXINE
     Dates: start: 20100318
  15. SIMVASTATIN. [Concomitant]
     Active Substance: SIMVASTATIN
     Dates: start: 20100519
  16. INSULIN LISPRO [Concomitant]
     Active Substance: INSULIN LISPRO
     Dates: start: 20200524
  17. HEPARIN [Concomitant]
     Active Substance: HEPARIN SODIUM
     Dates: start: 20200531
  18. MELATONIN [Concomitant]
     Active Substance: MELATONIN
     Dates: start: 20100318
  19. FAMOTIDINE. [Concomitant]
     Active Substance: FAMOTIDINE
     Dates: start: 20200530

REACTIONS (4)
  - Therapy cessation [None]
  - Haemodialysis [None]
  - Acute kidney injury [None]
  - Renal failure [None]

NARRATIVE: CASE EVENT DATE: 20200527
